FAERS Safety Report 19502391 (Version 1)
Quarter: 2021Q3

REPORT INFORMATION
  Report Type: Spontaneous
  Country: SE (occurrence: SE)
  Receive Date: 20210707
  Receipt Date: 20210707
  Transmission Date: 20211014
  Serious: Yes (Congenital Anomaly, Other)
  Sender: FDA-Public Use
  Company Number: NVSC2021SE145897

PATIENT

DRUGS (3)
  1. VALPROIC ACID. [Suspect]
     Active Substance: VALPROIC ACID
     Dosage: UNK,  DURING 2ND TRIMESTER OF PREGNANCY
     Route: 064
  2. LAMOTRIGINE. [Suspect]
     Active Substance: LAMOTRIGINE
     Indication: FOETAL EXPOSURE DURING PREGNANCY
     Dosage: UNK, DURING 1ST, 2ND TRIMESTER OF PREGNANCY
     Route: 064
  3. VALPROIC ACID. [Suspect]
     Active Substance: VALPROIC ACID
     Indication: FOETAL EXPOSURE DURING PREGNANCY
     Dosage: 650 MG, QD, DURING 1ST TRIMESTER OF PREGNANCY
     Route: 064

REACTIONS (4)
  - Ventricular septal defect [Unknown]
  - Limb reduction defect [Unknown]
  - Foetal exposure during pregnancy [Unknown]
  - Heart disease congenital [Unknown]
